FAERS Safety Report 6049363-4 (Version None)
Quarter: 2009Q1

REPORT INFORMATION
  Report Type: 
  Country: None (occurrence: None)
  Receive Date: 20090123
  Receipt Date: 20090112
  Transmission Date: 20090719
  Serious: Yes (Other)
  Sender: FDA-Public Use
  Company Number: FR-PFIZER INC-2009155157

PATIENT

DRUGS (3)
  1. XANAX [Suspect]
     Route: 048
     Dates: start: 20081121, end: 20081121
  2. CYTOTEC [Suspect]
     Route: 048
     Dates: start: 20081121, end: 20081121
  3. IBUPROFENE [Suspect]
     Route: 048
     Dates: start: 20081121, end: 20081121

REACTIONS (3)
  - LOCALISED OEDEMA [None]
  - OEDEMA PERIPHERAL [None]
  - URTICARIA [None]
